FAERS Safety Report 5402235-8 (Version None)
Quarter: 2007Q3

REPORT INFORMATION
  Report Type: 
  Country: None (occurrence: None)
  Receive Date: 20070801
  Receipt Date: 20070723
  Transmission Date: 20080115
  Serious: Yes (Other)
  Sender: FDA-Public Use
  Company Number: US-JNJFOC-20070601343

PATIENT
  Sex: Female
  Weight: 67.13 kg

DRUGS (5)
  1. REMICADE [Suspect]
     Indication: COLITIS ULCERATIVE
     Route: 042
  2. ADVAIR DISKUS 100/50 [Concomitant]
  3. ALLEGRA [Concomitant]
  4. TOPROL-XL [Concomitant]
  5. PRILOSEC [Concomitant]

REACTIONS (1)
  - COMPUTERISED TOMOGRAM ABNORMAL [None]
